FAERS Safety Report 11532319 (Version 5)
Quarter: 2015Q4

REPORT INFORMATION
  Report Type: Spontaneous
  Country: US (occurrence: US)
  Receive Date: 20150921
  Receipt Date: 20151022
  Transmission Date: 20160304
  Serious: Yes (Other)
  Sender: FDA-Public Use
  Company Number: US-PFIZER INC-2015314470

PATIENT
  Age: 75 Year
  Sex: Male
  Weight: 76 kg

DRUGS (11)
  1. NORCO [Concomitant]
     Active Substance: ACETAMINOPHEN\HYDROCODONE BITARTRATE
     Indication: AMYOTROPHIC LATERAL SCLEROSIS
  2. NORCO [Concomitant]
     Active Substance: ACETAMINOPHEN\HYDROCODONE BITARTRATE
     Indication: PAIN
     Dosage: HYDROCODONE BITARTRATE 10MG, PARACETAMOL 325MG SIX TO EIGHT TIMES A DAY
  3. FLEXERIL [Concomitant]
     Active Substance: CYCLOBENZAPRINE HYDROCHLORIDE
     Indication: RELAXATION THERAPY
     Dosage: UNK (AT BEDTIME)
  4. VIAGRA [Suspect]
     Active Substance: SILDENAFIL CITRATE
     Indication: ERECTILE DYSFUNCTION
     Dosage: 100 MG, 1X/DAY
     Route: 048
  5. VALIUM [Interacting]
     Active Substance: DIAZEPAM
     Indication: RELAXATION THERAPY
     Dosage: 5 MG, EVERY 6 HOURS
  6. OXYCODONE [Concomitant]
     Active Substance: OXYCODONE
     Indication: AMYOTROPHIC LATERAL SCLEROSIS
     Dosage: UNK
  7. VIAGRA [Interacting]
     Active Substance: SILDENAFIL CITRATE
     Dosage: 100 MG, 1X/DAY
     Route: 048
     Dates: end: 201509
  8. METHADONE [Concomitant]
     Active Substance: METHADONE HYDROCHLORIDE
     Indication: AMYOTROPHIC LATERAL SCLEROSIS
     Dosage: 10 MG, 3X/DAY
  9. VIAGRA [Interacting]
     Active Substance: SILDENAFIL CITRATE
     Dosage: 150-200 MG PER DAY (AT 6PM AND AT 9 OR 10PM)
     Dates: start: 201501
  10. MELOXICAM. [Concomitant]
     Active Substance: MELOXICAM
     Indication: RELAXATION THERAPY
     Dosage: UNK  (AT BEDTIME)
  11. LEXIVA [Concomitant]
     Active Substance: FOSAMPRENAVIR CALCIUM
     Dosage: UNK

REACTIONS (5)
  - Decreased appetite [Unknown]
  - Drug interaction [Unknown]
  - Intentional product use issue [Not Recovered/Not Resolved]
  - Pneumonia [Recovering/Resolving]
  - Drug ineffective [Not Recovered/Not Resolved]

NARRATIVE: CASE EVENT DATE: 2015
